FAERS Safety Report 6678862-7 (Version None)
Quarter: 2010Q2

REPORT INFORMATION
  Report Type: 
  Country: None (occurrence: None)
  Receive Date: 20100412
  Receipt Date: 20100412
  Transmission Date: 20101027
  Serious: No
  Sender: FDA-Public Use
  Company Number: None

PATIENT
  Age: 65 Year
  Sex: Male
  Weight: 86.1834 kg

DRUGS (1)
  1. DIOVAN [Suspect]
     Indication: HYPERTENSION
     Dosage: 80MG DAILY PO
     Route: 048
     Dates: start: 20090601, end: 20090701

REACTIONS (4)
  - BURNING SENSATION [None]
  - DRUG EFFECT DECREASED [None]
  - NERVE INJURY [None]
  - PAIN IN EXTREMITY [None]
